FAERS Safety Report 16018428 (Version 1)
Quarter: 2019Q1

REPORT INFORMATION
  Report Type: Spontaneous
  Country: US (occurrence: US)
  Receive Date: 20190201
  Receipt Date: 20190201
  Transmission Date: 20190418
  Serious: No
  Sender: FDA-Public Use
  Company Number: None

PATIENT
  Age: 37 Year

DRUGS (1)
  1. COPAXONE [Suspect]
     Active Substance: GLATIRAMER ACETATE
     Dosage: ?          OTHER FREQUENCY:OTHER;?
     Dates: start: 201811, end: 201901

REACTIONS (3)
  - Pain [None]
  - Pruritus [None]
  - Injection site reaction [None]

NARRATIVE: CASE EVENT DATE: 20190201
